FAERS Safety Report 13567553 (Version 1)
Quarter: 2017Q2

REPORT INFORMATION
  Report Type: Spontaneous
  Country: US (occurrence: US)
  Receive Date: 20170521
  Receipt Date: 20170521
  Transmission Date: 20170830
  Serious: Yes (Other)
  Sender: FDA-Public Use
  Company Number: None

PATIENT
  Age: 60 Year
  Sex: Male
  Weight: 74.91 kg

DRUGS (1)
  1. PROAIR HFA [Suspect]
     Active Substance: ALBUTEROL SULFATE

REACTIONS (5)
  - Therapy non-responder [None]
  - Product quality issue [None]
  - Device issue [None]
  - Incorrect dose administered by device [None]
  - Device malfunction [None]

NARRATIVE: CASE EVENT DATE: 20170518
